FAERS Safety Report 5094396-8 (Version None)
Quarter: 2006Q3

REPORT INFORMATION
  Report Type: 
  Country: None (occurrence: None)
  Receive Date: 20060829
  Receipt Date: 20060816
  Transmission Date: 20061208
  Serious: Yes (Disabling)
  Sender: FDA-Public Use
  Company Number: 2005082020

PATIENT
  Age: 73 Year
  Sex: Male

DRUGS (4)
  1. CABERGOLINE [Suspect]
     Indication: PARKINSON'S DISEASE
     Dosage: 6 MG (DAILY), ORAL
     Route: 048
     Dates: start: 19981224, end: 20050502
  2. CORODIL (ENALAPRIL) [Concomitant]
  3. COMTESS (ENTACAPONE) [Concomitant]
  4. SINEMET [Concomitant]

REACTIONS (5)
  - AORTIC VALVE SCLEROSIS [None]
  - DYSPNOEA [None]
  - MITRAL VALVE INCOMPETENCE [None]
  - MITRAL VALVE SCLEROSIS [None]
  - PLEURAL FIBROSIS [None]
